FAERS Safety Report 12568575 (Version 1)
Quarter: 2016Q3

REPORT INFORMATION
  Report Type: Spontaneous
  Country: BR (occurrence: BR)
  Receive Date: 20160719
  Receipt Date: 20160719
  Transmission Date: 20161109
  Serious: Yes (Other)
  Sender: FDA-Public Use
  Company Number: BR-AMGEN-BRASP2015005203

PATIENT
  Age: 70 Year
  Sex: Female

DRUGS (11)
  1. ENBREL [Suspect]
     Active Substance: ETANERCEPT
     Indication: RHEUMATOID ARTHRITIS
     Dosage: 50 MG, WEEKLY, DOSE 1.0 ML
     Route: 058
     Dates: start: 2014
  2. DEPURA [Concomitant]
     Active Substance: CHOLECALCIFEROL
     Dosage: UNK
     Dates: start: 20150113
  3. FORFIG [Concomitant]
     Dosage: 200 UNK, UNK
     Dates: start: 20150113
  4. HIGROTON [Concomitant]
     Active Substance: CHLORTHALIDONE
     Indication: HYPERTENSION
     Dosage: UNK UNK, 1X/DAY
  5. LOSARTAN. [Concomitant]
     Active Substance: LOSARTAN
     Indication: HYPERTENSION
     Dosage: 50 MG, 1X/DAY
  6. SIMVASTATIN. [Concomitant]
     Active Substance: SIMVASTATIN
     Indication: HYPERCHOLESTEROLAEMIA
     Dosage: 20 MG, 1X/DAY
  7. ADEFORTE [Concomitant]
     Active Substance: .ALPHA.-TOCOPHEROL, DL-\CHOLECALCIFEROL\VITAMIN A PALMITATE
     Indication: RHEUMATOID ARTHRITIS
     Dosage: 6 GTT, DAILY
  8. VICOG [Concomitant]
     Active Substance: VINPOCETINE
     Dosage: 5 MG, UNK
     Dates: start: 20150113
  9. DEFLAZACORT [Concomitant]
     Active Substance: DEFLAZACORT
     Dosage: 6 MG, UNK
     Dates: start: 20150113
  10. DILTIAZEM. [Concomitant]
     Active Substance: DILTIAZEM
     Indication: HYPERTENSION
     Dosage: 60 MG, 1X/DAY
  11. FOLIC ACID. [Concomitant]
     Active Substance: FOLIC ACID
     Dosage: 5 MG, WEEKLY

REACTIONS (6)
  - Injection site bruising [Unknown]
  - Peripheral swelling [Not Recovered/Not Resolved]
  - Injection site mass [Unknown]
  - Drug administered at inappropriate site [Unknown]
  - Pain in extremity [Not Recovered/Not Resolved]
  - Erysipelas [Unknown]

NARRATIVE: CASE EVENT DATE: 201412
